FAERS Safety Report 12461748 (Version 2)
Quarter: 2016Q2

REPORT INFORMATION
  Report Type: Spontaneous
  Country: TN (occurrence: TN)
  Receive Date: 20160613
  Receipt Date: 20160622
  Transmission Date: 20160815
  Serious: Yes (Death, Life-Threatening, Hospitalization, Other)
  Sender: FDA-Public Use
  Company Number: TN-PFIZER INC-2016291328

PATIENT
  Age: 32 Year
  Sex: Female

DRUGS (1)
  1. METHOTREXATE SODIUM. [Suspect]
     Active Substance: METHOTREXATE SODIUM
     Indication: ECTOPIC PREGNANCY
     Dosage: 44 MG/M2
     Route: 030

REACTIONS (9)
  - Septic shock [Fatal]
  - Mucosal inflammation [Unknown]
  - Pancytopenia [Unknown]
  - Renal failure [Unknown]
  - Toxicity to various agents [Fatal]
  - Hepatocellular injury [Unknown]
  - Bone marrow failure [Unknown]
  - Product use issue [Fatal]
  - Cholestasis [Unknown]

NARRATIVE: CASE EVENT DATE: 20130305
